FAERS Safety Report 7583405-X (Version None)
Quarter: 2011Q2

REPORT INFORMATION
  Report Type: 
  Country: None (occurrence: None)
  Receive Date: 20110623
  Receipt Date: 20110408
  Transmission Date: 20111010
  Serious: Yes (Death)
  Sender: FDA-Public Use
  Company Number: OSCN-NO-1106S-0154

PATIENT
  Age: 56 Year
  Sex: Female

DRUGS (1)
  1. OMNISCAN [Suspect]
     Indication: BREAST CANCER
     Dosage: 10 ML, SINGLE DOSE, INTRAVENOUS
     Route: 042
     Dates: start: 20110313, end: 20110313

REACTIONS (1)
  - RENAL FAILURE ACUTE [None]
